FAERS Safety Report 7202595-1 (Version None)
Quarter: 2010Q4

REPORT INFORMATION
  Report Type: 
  Country: None (occurrence: None)
  Receive Date: 20101229
  Receipt Date: 20101216
  Transmission Date: 20110411
  Serious: Yes (Hospitalization)
  Sender: FDA-Public Use
  Company Number: AT-AMGEN-AUTSP2010012001

PATIENT

DRUGS (1)
  1. ENBREL [Suspect]
     Dosage: UNK

REACTIONS (1)
  - FEMORAL NECK FRACTURE [None]
